FAERS Safety Report 18775426 (Version 2)
Quarter: 2021Q1

REPORT INFORMATION
  Report Type: Report from Study
  Country: MX (occurrence: MX)
  Receive Date: 20210122
  Receipt Date: 20210325
  Transmission Date: 20210419
  Serious: Yes (Other)
  Sender: FDA-Public Use
  Company Number: NVSC2021MX012804

PATIENT
  Sex: Male
  Weight: 88 kg

DRUGS (2)
  1. EXFORGE HCT [Suspect]
     Active Substance: AMLODIPINE BESYLATE\HYDROCHLOROTHIAZIDE\VALSARTAN
     Indication: HYPERTENSION
     Dosage: (5/160/12.5) MG
     Route: 048
     Dates: start: 20201208
  2. EXFORGE HCT [Suspect]
     Active Substance: AMLODIPINE BESYLATE\HYDROCHLOROTHIAZIDE\VALSARTAN
     Indication: BLOOD PRESSURE INCREASED
     Dosage: 3/4 (5 MG), 1/2 IN THE MORNING AND 1/4 AT NIGHT
     Route: 048
     Dates: start: 202011, end: 202012

REACTIONS (5)
  - Drug ineffective [Unknown]
  - COVID-19 [Unknown]
  - Off label use [Unknown]
  - Cough [Unknown]
  - Blood pressure decreased [Unknown]
